FAERS Safety Report 9378558 (Version 2)
Quarter: 2013Q3

REPORT INFORMATION
  Report Type: Spontaneous
  Country: US (occurrence: US)
  Receive Date: 20130702
  Receipt Date: 20130705
  Transmission Date: 20140515
  Serious: No
  Sender: FDA-Public Use
  Company Number: US-009507513-1306USA007766

PATIENT
  Age: 69 Year
  Sex: Female
  Weight: 58.96 kg

DRUGS (3)
  1. ZOCOR [Suspect]
     Indication: BLOOD CHOLESTEROL INCREASED
     Dosage: 20 MG, UNK
     Route: 048
  2. LIPITOR [Suspect]
     Indication: BLOOD CHOLESTEROL INCREASED
     Dosage: UNK
     Dates: start: 2001
  3. PRAVASTATIN SODIUM [Suspect]
     Indication: BLOOD CHOLESTEROL INCREASED
     Dosage: 20 MG, UNK
     Dates: start: 20130525

REACTIONS (7)
  - Renal disorder [Unknown]
  - Blood cholesterol increased [Unknown]
  - Movement disorder [Unknown]
  - Muscle atrophy [Unknown]
  - Drug hypersensitivity [Unknown]
  - Paraesthesia [Unknown]
  - Feeling abnormal [Unknown]
